FAERS Safety Report 9875254 (Version 1)
Quarter: 2014Q1

REPORT INFORMATION
  Report Type: Report from Study
  Country: US (occurrence: US)
  Receive Date: 20140206
  Receipt Date: 20140206
  Transmission Date: 20141002
  Serious: Yes (Other)
  Sender: FDA-Public Use
  Company Number: US-ALEXION PHARMACEUTICALS INC.-A201400296

PATIENT
  Age: 19 Year
  Sex: Female

DRUGS (3)
  1. SOLIRIS [Suspect]
     Indication: HAEMOLYTIC URAEMIC SYNDROME
     Dosage: 1200 MG, Q2W
     Route: 042
     Dates: start: 20131011
  2. CARVEDILOL [Concomitant]
     Indication: HYPERTENSION
     Dosage: UNK
     Dates: start: 20131020
  3. DEPO-PROVERA [Concomitant]
     Dosage: UNK
     Dates: start: 20131121

REACTIONS (5)
  - Catheter placement [Unknown]
  - Migraine [Unknown]
  - Hypertension [Unknown]
  - Vomiting [Unknown]
  - Local swelling [Not Recovered/Not Resolved]
